FAERS Safety Report 5145150-X (Version None)
Quarter: 2006Q4

REPORT INFORMATION
  Report Type: 
  Country: None (occurrence: None)
  Receive Date: 20061031
  Receipt Date: 20061016
  Transmission Date: 20070319
  Serious: Yes (Hospitalization)
  Sender: FDA-Public Use
  Company Number: 2006SP003840

PATIENT
  Age: 60 Year
  Sex: Male
  Weight: 64.5 kg

DRUGS (9)
  1. XOPENEX [Suspect]
     Indication: CHRONIC OBSTRUCTIVE PULMONARY DISEASE
     Dosage: 90 UG; PRN; INHALATION
     Route: 055
     Dates: start: 20060515
  2. VERAPAMIL [Concomitant]
  3. SOMA [Concomitant]
  4. XANAX [Concomitant]
  5. METHADONE HCL [Concomitant]
  6. BACLOFEN [Concomitant]
  7. EXCEDRIN (MIGRAINE) [Concomitant]
  8. ROLAIDS [Concomitant]
  9. LYRICA [Concomitant]

REACTIONS (1)
  - PNEUMONIA [None]
